FAERS Safety Report 5404733-X (Version None)
Quarter: 2007Q3

REPORT INFORMATION
  Report Type: 
  Country: None (occurrence: None)
  Receive Date: 20070801
  Receipt Date: 20070717
  Transmission Date: 20080115
  Serious: Yes (Other)
  Sender: FDA-Public Use
  Company Number: 2007EU001208

PATIENT
  Age: 45 Year
  Sex: Female

DRUGS (3)
  1. PROTOPIC [Suspect]
     Indication: DERMATITIS ATOPIC
     Dosage: 0.1 %, BID, TOPICAL; 0.03 %, /D, TOPICAL; 0.1 %,  /D, TOPICAL
     Route: 061
     Dates: start: 20070404, end: 20070416
  2. PROTOPIC [Suspect]
     Indication: DERMATITIS ATOPIC
     Dosage: 0.1 %, BID, TOPICAL; 0.03 %, /D, TOPICAL; 0.1 %,  /D, TOPICAL
     Route: 061
     Dates: start: 20070416
  3. PROTOPIC [Suspect]
     Indication: DERMATITIS ATOPIC
     Dosage: 0.1 %, BID, TOPICAL; 0.03 %, /D, TOPICAL; 0.1 %,  /D, TOPICAL
     Route: 061

REACTIONS (6)
  - FATIGUE [None]
  - MYALGIA [None]
  - NAUSEA [None]
  - PRESYNCOPE [None]
  - PRURITUS [None]
  - RASH GENERALISED [None]
